FAERS Safety Report 10301008 (Version 2)
Quarter: 2014Q3

REPORT INFORMATION
  Report Type: Spontaneous
  Country: FR (occurrence: FR)
  Receive Date: 20140714
  Receipt Date: 20140919
  Transmission Date: 20150326
  Serious: Yes (Death, Life-Threatening)
  Sender: FDA-Public Use
  Company Number: FR-ROCHE-1433917

PATIENT
  Age: 83 Year
  Sex: Female

DRUGS (3)
  1. MABTHERA [Suspect]
     Active Substance: RITUXIMAB
     Indication: PEMPHIGUS
     Route: 042
     Dates: start: 201405
  2. IMUREL [Suspect]
     Active Substance: AZATHIOPRINE SODIUM
     Indication: PEMPHIGUS
     Route: 048
     Dates: start: 201311
  3. CORTANCYL [Suspect]
     Active Substance: PREDNISONE
     Indication: PEMPHIGUS
     Route: 048
     Dates: start: 201311

REACTIONS (4)
  - Erysipelas [Unknown]
  - Bronchopneumonia [Fatal]
  - Pyelonephritis [Fatal]
  - General physical health deterioration [Unknown]
